FAERS Safety Report 10852162 (Version 1)
Quarter: 2015Q1

REPORT INFORMATION
  Report Type: Spontaneous
  Country: US (occurrence: US)
  Receive Date: 20150222
  Receipt Date: 20150222
  Transmission Date: 20150721
  Serious: No
  Sender: FDA-Public Use
  Company Number: US-ALLERGAN-1421995US

PATIENT
  Age: 43 Year
  Sex: Female

DRUGS (2)
  1. BOTOX [Suspect]
     Active Substance: ONABOTULINUMTOXINA
     Indication: MIGRAINE
     Dosage: UNK
     Route: 030
     Dates: start: 20141001, end: 20141001
  2. TOPAMAX [Concomitant]
     Active Substance: TOPIRAMATE
     Indication: MIGRAINE
     Dosage: 200 MG, QD

REACTIONS (12)
  - Malaise [Recovered/Resolved]
  - Sensory disturbance [Unknown]
  - Feeling abnormal [Unknown]
  - Muscular weakness [Not Recovered/Not Resolved]
  - Sensory disturbance [Unknown]
  - Musculoskeletal disorder [Not Recovered/Not Resolved]
  - Injection site pain [Unknown]
  - Disorientation [Unknown]
  - Somnolence [Unknown]
  - Confusional state [Unknown]
  - Head discomfort [Not Recovered/Not Resolved]
  - Malaise [Unknown]

NARRATIVE: CASE EVENT DATE: 20141002
